FAERS Safety Report 7039211-8 (Version None)
Quarter: 2010Q4

REPORT INFORMATION
  Report Type: 
  Country: None (occurrence: None)
  Receive Date: 20101007
  Receipt Date: 20101007
  Transmission Date: 20110411
  Serious: Yes (Hospitalization)
  Sender: FDA-Public Use
  Company Number: None

PATIENT
  Age: 52 Year
  Sex: Female

DRUGS (1)
  1. GEMCITABINE [Suspect]
     Indication: NEOPLASM MALIGNANT
     Dosage: IV (1 CYCLE)
     Route: 042

REACTIONS (6)
  - BODY TEMPERATURE FLUCTUATION [None]
  - INFLUENZA LIKE ILLNESS [None]
  - MALAISE [None]
  - PALLOR [None]
  - PYREXIA [None]
  - RASH [None]
